FAERS Safety Report 4436121-7 (Version None)
Quarter: 2004Q3

REPORT INFORMATION
  Report Type: 
  Country: None (occurrence: None)
  Receive Date: 20040726
  Receipt Date: 20040518
  Transmission Date: 20050211
  Serious: No
  Sender: FDA-Public Use
  Company Number: USA030331447

PATIENT
  Age: 73 Year
  Sex: Female
  Weight: 57 kg

DRUGS (9)
  1. FORTEO [Suspect]
     Indication: OSTEOPOROSIS
     Dosage: 20 UG/DAY
     Dates: start: 20030313
  2. VITAMIN B COMPLEX CAP [Concomitant]
  3. BEXTRA [Concomitant]
  4. FOLIC ACID [Concomitant]
  5. MIACALCIN [Concomitant]
  6. MULTI-VITAMIN [Concomitant]
  7. VITAMIN C [Concomitant]
  8. VITAMIN D [Concomitant]
  9. VITAMIN E [Concomitant]

REACTIONS (6)
  - HEADACHE [None]
  - ILL-DEFINED DISORDER [None]
  - INJECTION SITE HAEMORRHAGE [None]
  - PARAESTHESIA [None]
  - STRESS SYMPTOMS [None]
  - TREMOR [None]
